FAERS Safety Report 6067850-X (Version None)
Quarter: 2009Q1

REPORT INFORMATION
  Report Type: 
  Country: None (occurrence: None)
  Receive Date: 20090202
  Receipt Date: 20090123
  Transmission Date: 20090719
  Serious: Yes (Death)
  Sender: FDA-Public Use
  Company Number: US025353

PATIENT
  Sex: Male

DRUGS (2)
  1. TREANDA [Suspect]
     Indication: CHRONIC LYMPHOCYTIC LEUKAEMIA
     Dosage: 100 MG/M2 QD INTRAVENOUS
     Route: 042
     Dates: start: 20090114, end: 20090116
  2. ZOFRAN [Concomitant]

REACTIONS (3)
  - BLOOD CULTURE POSITIVE [None]
  - CARDIAC ARREST [None]
  - PNEUMOCOCCAL INFECTION [None]
